FAERS Safety Report 7211825-1 (Version None)
Quarter: 2011Q1

REPORT INFORMATION
  Report Type: 
  Country: None (occurrence: None)
  Receive Date: 20110105
  Receipt Date: 20101228
  Transmission Date: 20110831
  Serious: Yes (Other)
  Sender: FDA-Public Use
  Company Number: DE-AMGEN-DEUSP2011000330

PATIENT

DRUGS (5)
  1. ENBREL [Suspect]
     Indication: POLYARTHRITIS
  2. IDEOS [Concomitant]
     Dosage: UNK
  3. GLUCOCORTICOIDS [Concomitant]
     Dosage: 5 MG, UNK
  4. ENBREL [Suspect]
     Indication: RHEUMATOID ARTHRITIS
     Dosage: 50 MG, WEEKLY
     Dates: start: 20100727
  5. ALENDRONIC ACID [Concomitant]
     Dosage: UNK

REACTIONS (1)
  - DEPRESSED MOOD [None]
